FAERS Safety Report 6419092-3 (Version None)
Quarter: 2009Q4

REPORT INFORMATION
  Report Type: 
  Country: None (occurrence: None)
  Receive Date: 20091028
  Receipt Date: 20091028
  Transmission Date: 20100525
  Serious: Yes (Hospitalization)
  Sender: FDA-Public Use
  Company Number: None

PATIENT
  Sex: Female
  Weight: 22.6 kg

DRUGS (2)
  1. ONCASPAR [Suspect]
     Indication: ACUTE LYMPHOCYTIC LEUKAEMIA
     Dosage: 1875 IU IV OVER 2 ONCE IV
     Route: 042
     Dates: start: 20090614, end: 20090614
  2. ONCASPAR [Suspect]
     Indication: ACUTE LYMPHOCYTIC LEUKAEMIA
     Dosage: 1925 IU IM ONCE IM
     Route: 030
     Dates: start: 20090925, end: 20090925

REACTIONS (1)
  - NO ADVERSE EVENT [None]
